FAERS Safety Report 4359206-2 (Version None)
Quarter: 2004Q2

REPORT INFORMATION
  Report Type: 
  Country: None (occurrence: None)
  Receive Date: 20040517
  Receipt Date: 20040517
  Transmission Date: 20050107
  Serious: No
  Sender: FDA-Public Use
  Company Number: None

PATIENT
  Sex: Female
  Weight: 19.0511 kg

DRUGS (3)
  1. NIX [Suspect]
     Indication: LICE INFESTATION
     Dosage: EVERY 7 DAYS
     Dates: start: 20040101, end: 20040201
  2. RID MOUSSE [Suspect]
  3. PRONTO ONT [Suspect]

REACTIONS (2)
  - BRONCHITIS [None]
  - DRUG EFFECT DECREASED [None]
